FAERS Safety Report 11720414 (Version 1)
Quarter: 2015Q4

REPORT INFORMATION
  Report Type: Spontaneous
  Country: CH (occurrence: CH)
  Receive Date: 20151110
  Receipt Date: 20151110
  Transmission Date: 20160304
  Serious: Yes (Death)
  Sender: FDA-Public Use
  Company Number: CH-MEDA-2015110025

PATIENT
  Age: 85 Year
  Sex: Male
  Weight: 89 kg

DRUGS (20)
  1. PARACETAMOL [Suspect]
     Active Substance: ACETAMINOPHEN
     Dates: start: 20150904, end: 20150911
  2. XANAX [Concomitant]
     Active Substance: ALPRAZOLAM
     Dates: end: 20150911
  3. ASPIRIN CARDIO [Concomitant]
     Active Substance: ASPIRIN
     Dates: end: 20150911
  4. TOREM [Suspect]
     Active Substance: TORSEMIDE
     Dates: start: 20150909, end: 20150910
  5. TOREM [Suspect]
     Active Substance: TORSEMIDE
     Dates: start: 20150911, end: 20150911
  6. SEROQUEL [Suspect]
     Active Substance: QUETIAPINE FUMARATE
     Route: 048
     Dates: start: 20150909, end: 20150909
  7. QUETIAPINE [Suspect]
     Active Substance: QUETIAPINE
     Dosage: TOTAL 55 MG DISTRIBUTED OVER THE DAY (QUETIAPINE CAPSULES 5 MG)
     Route: 048
     Dates: start: 20150910, end: 20150910
  8. AZITHROMYCIN [Concomitant]
     Active Substance: AZITHROMYCIN ANHYDROUS
     Dates: end: 20150907
  9. DIOVAN [Suspect]
     Active Substance: VALSARTAN
     Route: 048
     Dates: end: 20150911
  10. EFFEXOR [Suspect]
     Active Substance: VENLAFAXINE HYDROCHLORIDE
     Route: 048
     Dates: end: 20150911
  11. NEXIUM [Suspect]
     Active Substance: ESOMEPRAZOLE MAGNESIUM
     Route: 048
     Dates: end: 20150911
  12. PULMICORT 0.5 MG [Concomitant]
     Dates: start: 20150908, end: 20150911
  13. QUETIAPINE [Suspect]
     Active Substance: QUETIAPINE
     Dosage: TOTAL 25 MG EVENINGS
     Route: 048
     Dates: start: 20150911, end: 20150911
  14. QUETIAPINE [Suspect]
     Active Substance: QUETIAPINE
     Dosage: TOTAL 52.5 MG; 12.5 MG MORNING ONE TIME + 40 MG RESERVE BY MEANS OF QUETIAPINE CAPSULES 5 MG
     Route: 048
     Dates: start: 20150909, end: 20150909
  15. ATORVASTATIN [Concomitant]
     Active Substance: ATORVASTATIN
     Dates: end: 20150911
  16. CONCOR [Suspect]
     Active Substance: BISOPROLOL FUMARATE
     Route: 048
     Dates: end: 20150911
  17. REMERON [Suspect]
     Active Substance: MIRTAZAPINE
     Route: 048
     Dates: end: 20150911
  18. DOSPIR [Suspect]
     Active Substance: ALBUTEROL SULFATE\IPRATROPIUM BROMIDE
     Route: 055
     Dates: start: 20150906, end: 20150911
  19. TAZOBAC [Suspect]
     Active Substance: PIPERACILLIN SODIUM\TAZOBACTAM SODIUM
     Route: 042
     Dates: start: 20150908, end: 20150911
  20. AUGMENTIN [Suspect]
     Active Substance: AMOXICILLIN\CLAVULANATE POTASSIUM
     Route: 042
     Dates: start: 20150907, end: 20150908

REACTIONS (3)
  - Transaminases increased [Unknown]
  - Cardiac failure [Fatal]
  - Hypokalaemia [Unknown]

NARRATIVE: CASE EVENT DATE: 20150910
